FAERS Safety Report 6189756-8 (Version None)
Quarter: 2009Q2

REPORT INFORMATION
  Report Type: 
  Country: None (occurrence: None)
  Receive Date: 20090514
  Receipt Date: 20090430
  Transmission Date: 20091009
  Serious: Yes (Other)
  Sender: FDA-Public Use
  Company Number: JP-AVENTIS-200911254JP

PATIENT

DRUGS (2)
  1. LASIX [Suspect]
     Route: 048
  2. UNKNOWN DRUG [Concomitant]

REACTIONS (2)
  - DIZZINESS [None]
  - SYNCOPE [None]
